FAERS Safety Report 21045419 (Version 2)
Quarter: 2022Q3

REPORT INFORMATION
  Report Type: Spontaneous
  Country: US (occurrence: US)
  Receive Date: 20220706
  Receipt Date: 20220727
  Transmission Date: 20221027
  Serious: No
  Sender: FDA-Public Use
  Company Number: US-BRISTOL-MYERS SQUIBB COMPANY-2022-063821

PATIENT
  Age: 68 Year
  Sex: Female

DRUGS (2)
  1. SPRYCEL [Suspect]
     Active Substance: DASATINIB
     Indication: Chronic myeloid leukaemia
     Route: 048
     Dates: start: 20180105
  2. SPRYCEL [Suspect]
     Active Substance: DASATINIB
     Route: 048
     Dates: start: 20180106

REACTIONS (9)
  - Abdominal discomfort [Unknown]
  - Fatigue [Unknown]
  - Asthenia [Unknown]
  - Decreased appetite [Unknown]
  - Weight decreased [Unknown]
  - Blood pressure decreased [Unknown]
  - Headache [Unknown]
  - Gout [Unknown]
  - Frequent bowel movements [Unknown]
